FAERS Safety Report 6784127-5 (Version None)
Quarter: 2010Q2

REPORT INFORMATION
  Report Type: 
  Country: None (occurrence: None)
  Receive Date: 20100622
  Receipt Date: 20100615
  Transmission Date: 20101027
  Serious: Yes (Hospitalization)
  Sender: FDA-Public Use
  Company Number: US-JNJFOC-20100605468

PATIENT
  Age: 61 Year
  Sex: Female

DRUGS (1)
  1. CLADRIBINE [Suspect]
     Indication: CASTLEMAN'S DISEASE
     Route: 042

REACTIONS (4)
  - CONFUSIONAL STATE [None]
  - FATIGUE [None]
  - PYREXIA [None]
  - RASH [None]
